FAERS Safety Report 8598736-4 (Version None)
Quarter: 2012Q3

REPORT INFORMATION
  Report Type: 
  Country: None (occurrence: None)
  Receive Date: 20120803
  Receipt Date: 20120726
  Transmission Date: 20120928
  Serious: Yes (Other)
  Sender: FDA-Public Use
  Company Number: US-009044

PATIENT
  Age: 23 Year
  Sex: Female
  Weight: 87.5442 kg

DRUGS (2)
  1. TRANEXAMIC ACID [Suspect]
     Indication: MENORRHAGIA
     Dosage: (RECEIVED A TOTAL OF EIGHT PILLS)
     Dates: start: 20120626, end: 20120627
  2. ACYCLOVIR [Concomitant]

REACTIONS (11)
  - SENSATION OF PRESSURE [None]
  - HYPOAESTHESIA ORAL [None]
  - VIITH NERVE PARALYSIS [None]
  - MIGRAINE [None]
  - ARTHRALGIA [None]
  - BLEPHAROSPASM [None]
  - MUSCLE TWITCHING [None]
  - DYSGEUSIA [None]
  - PAIN [None]
  - DRY MOUTH [None]
  - FACIAL SPASM [None]
